FAERS Safety Report 23699665 (Version 2)
Quarter: 2024Q2

REPORT INFORMATION
  Report Type: Report from Study
  Country: US (occurrence: US)
  Receive Date: 20240403
  Receipt Date: 20240406
  Transmission Date: 20240715
  Serious: Yes (Hospitalization, Other)
  Sender: FDA-Public Use
  Company Number: US-ABBVIE-5694449

PATIENT
  Age: 22 Year
  Sex: Female
  Weight: 40.369 kg

DRUGS (6)
  1. RINVOQ [Suspect]
     Active Substance: UPADACITINIB
     Indication: Crohn^s disease
     Dosage: FORM STRENGTH: 45 MILLIGRAMS
     Route: 048
     Dates: start: 20231007, end: 202401
  2. RINVOQ [Suspect]
     Active Substance: UPADACITINIB
     Indication: Crohn^s disease
     Dosage: FORM STRENGTH: 30 MILLIGRAMS
     Route: 048
     Dates: start: 202401, end: 202402
  3. RINVOQ [Suspect]
     Active Substance: UPADACITINIB
     Indication: Crohn^s disease
     Dosage: FORM STRENGTH: 45 MILLIGRAMS?LAST ADMIN DATE: 2024
     Route: 048
     Dates: start: 202402
  4. RINVOQ [Suspect]
     Active Substance: UPADACITINIB
     Indication: Crohn^s disease
     Dosage: FORM STRENGTH: 30 MILLIGRAM?FIRST ADMIN DATE: 2024
     Route: 048
  5. PREDNISONE [Concomitant]
     Active Substance: PREDNISONE
     Indication: Inflammation
     Dates: start: 20240303
  6. OMEPRAZOLE [Concomitant]
     Active Substance: OMEPRAZOLE
     Indication: Gastrooesophageal reflux disease
     Dosage: 20 MILLIGRAM

REACTIONS (10)
  - Abdominal pain upper [Recovering/Resolving]
  - Colitis [Unknown]
  - Drug ineffective [Recovering/Resolving]
  - Acne [Recovered/Resolved]
  - Malaise [Unknown]
  - Colostomy infection [Not Recovered/Not Resolved]
  - Furuncle [Not Recovered/Not Resolved]
  - Mouth ulceration [Unknown]
  - Inflammatory marker increased [Unknown]
  - Enteritis [Unknown]

NARRATIVE: CASE EVENT DATE: 20240101
